FAERS Safety Report 5693487-8 (Version None)
Quarter: 2008Q2

REPORT INFORMATION
  Report Type: 
  Country: None (occurrence: None)
  Receive Date: 20080403
  Receipt Date: 20080328
  Transmission Date: 20081010
  Serious: Yes (Other)
  Sender: FDA-Public Use
  Company Number: A0718096A

PATIENT
  Age: 57 Year
  Sex: Female

DRUGS (4)
  1. ADVAIR HFA [Suspect]
     Indication: ASTHMA
     Dosage: 1PUFF TWICE PER DAY
     Route: 055
     Dates: start: 20030101
  2. PREMARIN [Concomitant]
  3. VERAPAMIL [Concomitant]
  4. LEVOTHYROXINE SODIUM [Concomitant]

REACTIONS (5)
  - FOOD ALLERGY [None]
  - LACRIMATION INCREASED [None]
  - PARAESTHESIA [None]
  - SYNCOPE [None]
  - THROAT TIGHTNESS [None]
